FAERS Safety Report 26089582 (Version 1)
Quarter: 2025Q4

REPORT INFORMATION
  Report Type: Other
  Country: US (occurrence: US)
  Receive Date: 20251125
  Receipt Date: 20251125
  Transmission Date: 20260119
  Serious: Yes (Other)
  Sender: HLS THERAPEUTICS
  Company Number: US-HLS-202500400

PATIENT
  Age: 44 Year
  Sex: Male

DRUGS (2)
  1. CLOZAPINE [Suspect]
     Active Substance: CLOZAPINE
     Indication: Schizophrenia
     Dosage: WAS TAKING SINCE 25 YEARS.?100MG TID
     Route: 065
     Dates: start: 1998, end: 202311
  2. VALPROIC ACID [Concomitant]
     Active Substance: VALPROIC ACID
     Indication: Seizure prophylaxis
     Dosage: TWICE A DAY
     Route: 065

REACTIONS (15)
  - Deep vein thrombosis [Recovered/Resolved]
  - Psychotic behaviour [Unknown]
  - Hallucination, auditory [Recovered/Resolved]
  - Apathy [Unknown]
  - Behaviour disorder [Unknown]
  - Cognitive disorder [Unknown]
  - Loss of personal independence in daily activities [Recovering/Resolving]
  - Paranoia [Recovering/Resolving]
  - Persecutory delusion [Unknown]
  - Pulmonary embolism [Unknown]
  - Speech disorder [Unknown]
  - Depressive symptom [Unknown]
  - Social avoidant behaviour [Recovering/Resolving]
  - Suspiciousness [Unknown]
  - Visual processing disorder [Unknown]

NARRATIVE: CASE EVENT DATE: 20231101
